FAERS Safety Report 20325479 (Version 3)
Quarter: 2022Q1

REPORT INFORMATION
  Report Type: Report from Study
  Country: US (occurrence: None)
  Receive Date: 20220112
  Receipt Date: 20220318
  Transmission Date: 20220423
  Serious: Yes (Hospitalization, Other)
  Sender: FDA-Public Use
  Company Number: US-Merck Healthcare KGaA-9291792

PATIENT
  Age: 53 Year
  Sex: Male

DRUGS (1)
  1. REBIF [Suspect]
     Active Substance: INTERFERON BETA-1A
     Indication: Product used for unknown indication
     Route: 058
     Dates: start: 20070319

REACTIONS (7)
  - Tracheostomy [Unknown]
  - Cholelithiasis [Unknown]
  - Cholecystitis infective [Unknown]
  - Urinary tract infection [Unknown]
  - Wheelchair user [Unknown]
  - Liver function test increased [Recovering/Resolving]
  - Diarrhoea [Recovered/Resolved]

NARRATIVE: CASE EVENT DATE: 20211101
